FAERS Safety Report 7402323-0 (Version None)
Quarter: 2011Q1

REPORT INFORMATION
  Report Type: 
  Country: None (occurrence: None)
  Receive Date: 20110330
  Receipt Date: 20110315
  Transmission Date: 20110831
  Serious: Yes (Death, Other)
  Sender: FDA-Public Use
  Company Number: FK201100525

PATIENT
  Age: 50 Year
  Sex: Male

DRUGS (5)
  1. VINCRISTINE [Suspect]
     Indication: B-CELL LYMPHOMA
     Dosage: (2 MG) INTRAVENOUS (NOT OTHERWISE SPECIFIED)
     Route: 042
  2. RITUXIMAB (RITUXIMAB) (RITUXIMAB) [Suspect]
     Indication: B-CELL LYMPHOMA
     Dosage: (375 MG/M2) INTRAVENOUS (NOT OTHERWISE SPECIFIED)
     Route: 042
  3. DOXORUBICIN (MANUFACTURER UNKNOWN) (DOXORUBICIN) (DOXORUBICIN) [Suspect]
     Indication: B-CELL LYMPHOMA
     Dosage: (50 MG/M2) INTRAVENOUS (NOT OTHERWISE SPECIFIED)
     Route: 042
  4. PREDNISOLONE [Suspect]
     Indication: B-CELL LYMPHOMA
     Dosage: (40 MG/M2)
  5. CYCLOPHOSPHAMIDE [Suspect]
     Indication: B-CELL LYMPHOMA
     Dosage: (750 MG/M2) INTRAVENOUS (NOT OTHERWISE SPECIFIED)
     Route: 042

REACTIONS (5)
  - HEPATITIS B [None]
  - HEPATORENAL SYNDROME [None]
  - DISEASE RECURRENCE [None]
  - LIVER TRANSPLANT [None]
  - HEPATIC FAILURE [None]
